FAERS Safety Report 12332649 (Version 3)
Quarter: 2016Q3

REPORT INFORMATION
  Report Type: Spontaneous
  Country: US (occurrence: US)
  Receive Date: 20160504
  Receipt Date: 20160708
  Transmission Date: 20161109
  Serious: No
  Sender: FDA-Public Use
  Company Number: US-PFIZER INC-2016242465

PATIENT
  Age: 73 Year
  Sex: Female

DRUGS (3)
  1. ACCUPRIL [Suspect]
     Active Substance: QUINAPRIL HYDROCHLORIDE
     Dosage: 20 MG, 2X/DAY (20MG IN THE MORNING AND 20MG IN THE EVENING)
     Dates: start: 2015
  2. ACCUPRIL [Suspect]
     Active Substance: QUINAPRIL HYDROCHLORIDE
     Dosage: 40 MG, 1X/DAY
     Dates: start: 2015
  3. ACCUPRIL [Suspect]
     Active Substance: QUINAPRIL HYDROCHLORIDE
     Indication: BLOOD PRESSURE MANAGEMENT
     Dosage: 20 MG, UNK

REACTIONS (5)
  - Blood pressure decreased [Unknown]
  - Renal disorder [Unknown]
  - Drug ineffective [Unknown]
  - Muscular weakness [Unknown]
  - Feeling abnormal [Unknown]

NARRATIVE: CASE EVENT DATE: 2015
